FAERS Safety Report 5074896-7 (Version None)
Quarter: 2006Q3

REPORT INFORMATION
  Report Type: 
  Country: None (occurrence: None)
  Receive Date: 20060717
  Receipt Date: 20051130
  Transmission Date: 20061208
  Serious: No
  Sender: FDA-Public Use
  Company Number: 2005002307

PATIENT
  Age: 50 Year
  Sex: Male

DRUGS (10)
  1. TARCEVA [Suspect]
     Indication: NON-SMALL CELL LUNG CANCER
     Dosage: 150 MG (QD), ORAL
     Route: 048
     Dates: start: 20051101
  2. LEVOXYL [Concomitant]
  3. NORTRIPTYLINE HCL [Concomitant]
  4. MOBIC [Concomitant]
  5. REGLAN [Concomitant]
  6. ZOFRAN [Concomitant]
  7. ALTACE [Concomitant]
  8. HYDROCODONE (HYDROCODONE) [Concomitant]
  9. DECADRON [Concomitant]
  10. LANTUS [Concomitant]

REACTIONS (2)
  - GYNAECOMASTIA [None]
  - WEIGHT INCREASED [None]
